FAERS Safety Report 5900015-8 (Version None)
Quarter: 2008Q3

REPORT INFORMATION
  Report Type: 
  Country: None (occurrence: None)
  Receive Date: 20080925
  Receipt Date: 20080925
  Transmission Date: 20090109
  Serious: Yes (Other)
  Sender: FDA-Public Use
  Company Number: None

PATIENT
  Age: 40 Year
  Sex: Female
  Weight: 65.7716 kg

DRUGS (1)
  1. BUPROPION HCL XL 300 MG ANCHEN [Suspect]
     Indication: DEPRESSION
     Dosage: 1 TABLET EACH MORNING PO, DAILY -START DATE
     Route: 048
     Dates: start: 20061001, end: 20080924

REACTIONS (7)
  - ANXIETY [None]
  - CHEST PAIN [None]
  - DIARRHOEA [None]
  - DRUG TOLERANCE [None]
  - IRRITABILITY [None]
  - MEDICATION RESIDUE [None]
  - PHARMACEUTICAL PRODUCT COMPLAINT [None]
